APPROVED DRUG PRODUCT: BUSPIRONE HYDROCHLORIDE
Active Ingredient: BUSPIRONE HYDROCHLORIDE
Strength: 30MG
Dosage Form/Route: TABLET;ORAL
Application: A075413 | Product #005 | TE Code: AB
Applicant: RISING PHARMA HOLDINGS INC
Approved: Oct 6, 2025 | RLD: No | RS: No | Type: RX